FAERS Safety Report 20775657 (Version 1)
Quarter: 2022Q2

REPORT INFORMATION
  Report Type: Spontaneous
  Country: GB (occurrence: GB)
  Receive Date: 20220502
  Receipt Date: 20220502
  Transmission Date: 20220721
  Serious: Yes (Other)
  Sender: FDA-Public Use
  Company Number: None

PATIENT
  Sex: Male

DRUGS (5)
  1. AMLODIPINE [Suspect]
     Active Substance: AMLODIPINE BESYLATE
     Dosage: 10 MILLIGRAM DAILY; 22-DEC-2021, STRENGTH : 10 MG, UNIT DOSE: 10 MG
  2. AMLODIPINE [Suspect]
     Active Substance: AMLODIPINE BESYLATE
     Dosage: 5 MILLIGRAM DAILY; 03-DEC-2021, EVENING 28 TABLET, STRENGTH : 5 MG, UNIT DOSE: 5 MG
  3. AMOXICILLIN [Concomitant]
     Active Substance: AMOXICILLIN
     Route: 042
  4. CLARITHROMYCIN [Concomitant]
     Active Substance: CLARITHROMYCIN
     Dosage: 500MG PO
  5. DALTEPARIN [Concomitant]
     Active Substance: DALTEPARIN
     Dosage: 5000 UNITS

REACTIONS (1)
  - Mood altered [Recovered/Resolved]
